FAERS Safety Report 8092238-X (Version None)
Quarter: 2012Q1

REPORT INFORMATION
  Report Type: 
  Country: None (occurrence: None)
  Receive Date: 20120129
  Receipt Date: 20111104
  Transmission Date: 20120608
  Serious: No
  Sender: FDA-Public Use
  Company Number: US-ABBOTT-11P-163-0871694-00

PATIENT
  Sex: Female

DRUGS (1)
  1. HUMIRA [Suspect]
     Indication: RHEUMATOID ARTHRITIS
     Dosage: HOLD FOR FEVER OR INFECTIONS
     Route: 050
     Dates: start: 20110501

REACTIONS (2)
  - NASOPHARYNGITIS [None]
  - COUGH [None]
